FAERS Safety Report 17580547 (Version 1)
Quarter: 2020Q1

REPORT INFORMATION
  Report Type: Report from Study
  Country: US (occurrence: US)
  Receive Date: 20200325
  Receipt Date: 20200325
  Transmission Date: 20200409
  Serious: Yes (Hospitalization)
  Sender: FDA-Public Use
  Company Number: NVSC2020US082796

PATIENT
  Sex: Female
  Weight: 47.6 kg

DRUGS (1)
  1. LAMPRENE [Suspect]
     Active Substance: CLOFAZIMINE
     Indication: MYCOBACTERIUM AVIUM COMPLEX INFECTION
     Dosage: 100 MG, QD
     Route: 048
     Dates: start: 20191118

REACTIONS (7)
  - Leukocytosis [Unknown]
  - Urinary tract infection [Unknown]
  - Cough [Unknown]
  - Pseudomonas infection [Unknown]
  - Asthenia [Unknown]
  - Vomiting [Unknown]
  - Dyspnoea [Unknown]
